FAERS Safety Report 9192024 (Version 2)
Quarter: 2013Q2

REPORT INFORMATION
  Report Type: Spontaneous
  Country: US (occurrence: None)
  Receive Date: 20120703
  Receipt Date: 20121031
  Transmission Date: 20140414
  Serious: Yes (Other)
  Sender: FDA-Public Use
  Company Number: PHEH2012US009081

PATIENT
  Age: 51 Year
  Sex: Male
  Weight: 118.4 kg

DRUGS (34)
  1. GILENYA [Suspect]
     Indication: MULTIPLE SCLEROSIS
     Route: 048
     Dates: start: 20110426
  2. PHENERGAN (PROMETHAZINE HYDROCHLORIDE) [Concomitant]
  3. HYDROCODONE W/ACETAMINOPHEN (HYDROCODONE BITARTRATE, PARACETAMOL) [Concomitant]
  4. ALPRAZOLAM [Concomitant]
  5. ATROVENT HFA AEROSOL [Concomitant]
  6. WELLBUTRIN SR (BUPROPION) [Concomitant]
  7. FLOMAX (TAMSULOSIN HYDROCHLORIDE) [Concomitant]
  8. DIOVAN (VALSARTAN) [Concomitant]
  9. BACLOFEN [Concomitant]
  10. NEXIUM (ESOMEPRAZOLE MAGNESIUM) [Concomitant]
  11. VITAMIN E (TOCOPHEROL) [Concomitant]
  12. TYLENOL EXTRA-STRENGTH (PARACETAMOL) [Concomitant]
  13. ZOCOR (SIMVASTATIN) [Concomitant]
  14. FIBER (POLYCARBOPHIL CALCIUM) [Concomitant]
  15. URECHOLINE (BETHANECHOL CHLORIDE) [Concomitant]
  16. FLEXERIL (CYCLOBENZAPRINE HYDROCHLORIDE) [Concomitant]
  17. MORPHINE SULFATE [Concomitant]
  18. LOPROX (CICLOPIROX OLAMINE) [Concomitant]
  19. ASPIRIN (ACETYLSALICYCLIC ACID) [Concomitant]
  20. ECONAZOLE NITRATE [Concomitant]
  21. FISH OIL [Concomitant]
  22. CYANOCOBALAMIN [Concomitant]
  23. MULTIVITAMIN (VITAMINS NOS) [Concomitant]
  24. DOXEPIN HYDROCHLORIDE [Concomitant]
  25. LIDODERM (LIDOCAINE) [Concomitant]
  26. NASONEX (MOMETASONE FUROATE) [Concomitant]
  27. POLYETHYLENE GLYCOL (MACROGOL) [Concomitant]
  28. CETIRIZINE HYDROCHLORIDE [Concomitant]
  29. BETAMETHASONE DIPROPIONATE [Concomitant]
  30. CLOBETASOL PROPIONATE [Concomitant]
  31. GLUCOSAMINE W/CHONDROITIN (CHONDROITIN SULFATE, GLUCOSAMINE) [Concomitant]
  32. TRIAMCINOLONE ACETONIDE [Concomitant]
  33. VENTOLIN (SALBUTAMOL) [Concomitant]
  34. AMMONIUM LACTATE [Concomitant]

REACTIONS (14)
  - Ophthalmic herpes simplex [None]
  - Impaired healing [None]
  - Scratch [None]
  - Memory impairment [None]
  - Insomnia [None]
  - Visual impairment [None]
  - Neurogenic bladder [None]
  - Lacrimation increased [None]
  - Visual field defect [None]
  - Ocular hyperaemia [None]
  - Foreign body sensation in eyes [None]
  - Eye swelling [None]
  - Vision blurred [None]
  - Eye pain [None]
